FAERS Safety Report 17620296 (Version 1)
Quarter: 2020Q2

REPORT INFORMATION
  Report Type: Report from Study
  Country: EG (occurrence: EG)
  Receive Date: 20200403
  Receipt Date: 20200403
  Transmission Date: 20200713
  Serious: Yes (Hospitalization, Other)
  Sender: FDA-Public Use
  Company Number: EG-GLAXOSMITHKLINE-EG2020GSK057937

PATIENT

DRUGS (1)
  1. DICLOFENAC [Suspect]
     Active Substance: DICLOFENAC
     Indication: PRODUCT USED FOR UNKNOWN INDICATION
     Dosage: UNK

REACTIONS (6)
  - Hepatic infiltration eosinophilic [Unknown]
  - Autoimmune hepatitis [Unknown]
  - Hepatocellular injury [Unknown]
  - Hepatic necrosis [Unknown]
  - Drug-induced liver injury [Unknown]
  - Portal tract inflammation [Unknown]
